FAERS Safety Report 9608373 (Version 2)
Quarter: 2013Q4

REPORT INFORMATION
  Report Type: Spontaneous
  Country: US (occurrence: US)
  Receive Date: 20131009
  Receipt Date: 20131112
  Transmission Date: 20140711
  Serious: No
  Sender: FDA-Public Use
  Company Number: US-PFIZER INC-2013286637

PATIENT
  Age: 7 Year
  Sex: Male

DRUGS (7)
  1. GENOTROPIN [Suspect]
     Indication: GROWTH RETARDATION
     Dosage: 5 MG, 1X/DAY
     Dates: start: 2008
  2. GENOTROPIN [Suspect]
     Indication: SMALL FOR DATES BABY
     Dosage: 0.7 MG, 1X/DAY
     Route: 058
     Dates: start: 200908
  3. SYNTHROID [Concomitant]
     Indication: HYPOTHYROIDISM
     Dosage: 50 UG, DAILY
  4. STRATTERA [Concomitant]
     Indication: ATTENTION DEFICIT/HYPERACTIVITY DISORDER
     Dosage: 10 MG, DAILY
  5. RISPERIDONE [Concomitant]
     Indication: TOURETTE^S DISORDER
     Dosage: 0.25 MG, DAILY
  6. CLONIDINE [Concomitant]
     Indication: ATTENTION DEFICIT/HYPERACTIVITY DISORDER
     Dosage: UNK
  7. PULMICORT [Concomitant]
     Indication: HYPERSENSITIVITY
     Dosage: UNK

REACTIONS (4)
  - Product quality issue [Recovered/Resolved with Sequelae]
  - Injection site pain [Recovered/Resolved with Sequelae]
  - Crying [Recovered/Resolved with Sequelae]
  - Screaming [Recovered/Resolved with Sequelae]
